FAERS Safety Report 22370908 (Version 1)
Quarter: 2023Q2

REPORT INFORMATION
  Report Type: Spontaneous
  Country: US (occurrence: US)
  Receive Date: 20230526
  Receipt Date: 20230526
  Transmission Date: 20230722
  Serious: Yes (Other)
  Sender: FDA-Public Use
  Company Number: US-ROCHE-2909062

PATIENT
  Age: 51 Year
  Sex: Female
  Weight: 60.835 kg

DRUGS (11)
  1. CAPECITABINE [Suspect]
     Active Substance: CAPECITABINE
     Indication: Breast cancer female
     Dosage: 2 TIMES PER DAY, FOR 14 DAYS, THEN OFF 7 DAYS, 21 DAYS
     Route: 048
     Dates: start: 20210908
  2. CAPECITABINE [Suspect]
     Active Substance: CAPECITABINE
     Indication: Breast cancer female
     Dosage: 2 TIMES PER DAY, FOR 14 DAYS, THEN OFF 7 DAYS, 21 DAYS
     Route: 048
     Dates: start: 20220602
  3. HERCEPTIN [Suspect]
     Active Substance: TRASTUZUMAB
     Indication: Breast cancer female
     Route: 042
     Dates: start: 20210908
  4. PERJETA [Suspect]
     Active Substance: PERTUZUMAB
     Indication: Breast cancer female
     Route: 042
     Dates: start: 20210908
  5. AVASTIN [Suspect]
     Active Substance: BEVACIZUMAB
     Indication: Breast cancer female
     Dosage: EVERY 3 WEEKS, 4/14 DAYS
     Dates: start: 20210908
  6. AVASTIN [Suspect]
     Active Substance: BEVACIZUMAB
     Indication: Breast cancer female
     Dosage: EVERY 3 WEEKS, 4/14 DAYS
     Dates: start: 20210908
  7. BONIVA [Suspect]
     Active Substance: IBANDRONATE SODIUM
     Indication: Breast cancer female
     Dosage: EVERY 3 WEEKS, 4/14 DAYS
     Dates: start: 20210908
  8. BONIVA [Suspect]
     Active Substance: IBANDRONATE SODIUM
     Indication: Breast cancer female
     Dosage: ON AN UNKNOWN DATE
  9. TAMOXIFEN CITRATE [Concomitant]
     Active Substance: TAMOXIFEN CITRATE
  10. DEXAMETHASONE [Concomitant]
     Active Substance: DEXAMETHASONE
  11. KEPPRA [Concomitant]
     Active Substance: LEVETIRACETAM

REACTIONS (35)
  - Fatigue [Unknown]
  - Sleep disorder [Unknown]
  - Muscle atrophy [Unknown]
  - Muscular weakness [Unknown]
  - Emotional distress [Unknown]
  - Thyroid mass [Unknown]
  - Seizure [Unknown]
  - Rash [Unknown]
  - Postmenopause [Unknown]
  - Insomnia [Unknown]
  - Somnolence [Unknown]
  - Anaemia [Unknown]
  - Secondary thrombocytosis [Unknown]
  - Myopathy [Unknown]
  - Cholelithiasis [Unknown]
  - Diarrhoea [Unknown]
  - Malaise [Unknown]
  - Pain [Unknown]
  - Nausea [Unknown]
  - Nail discolouration [Unknown]
  - Memory impairment [Unknown]
  - Pollakiuria [Unknown]
  - Burning sensation [Unknown]
  - Weight decreased [Unknown]
  - Visual impairment [Unknown]
  - Urinary tract infection [Unknown]
  - Headache [Unknown]
  - Palmar-plantar erythrodysaesthesia syndrome [Unknown]
  - Arthralgia [Unknown]
  - Dysgeusia [Unknown]
  - Ageusia [Unknown]
  - Incontinence [Unknown]
  - Muscular weakness [Unknown]
  - HER2 positive breast cancer [Unknown]
  - Breast cancer metastatic [Unknown]

NARRATIVE: CASE EVENT DATE: 20220215
